FAERS Safety Report 21245909 (Version 1)
Quarter: 2022Q3

REPORT INFORMATION
  Report Type: Spontaneous
  Country: US (occurrence: US)
  Receive Date: 20220824
  Receipt Date: 20220824
  Transmission Date: 20221027
  Serious: No
  Sender: FDA-Public Use
  Company Number: US-BRISTOL-MYERS SQUIBB COMPANY-2022-094505

PATIENT
  Age: 71 Year
  Sex: Male

DRUGS (1)
  1. REVLIMID [Suspect]
     Active Substance: LENALIDOMIDE
     Indication: Plasma cell myeloma
     Dosage: THERAPY WAS GIVEN 21 DAYS ON AND 7 DAYS OFF AND DOSE CHANGED TO 15 MG, ONCE DAILY FOR 14 DAYS, 7 DAY
     Route: 048
     Dates: start: 20220804

REACTIONS (2)
  - Full blood count decreased [Unknown]
  - Intentional product use issue [Unknown]
